FAERS Safety Report 6429891-X (Version None)
Quarter: 2009Q4

REPORT INFORMATION
  Report Type: 
  Country: None (occurrence: None)
  Receive Date: 20091106
  Receipt Date: 20091102
  Transmission Date: 20100525
  Serious: Yes (Death)
  Sender: FDA-Public Use
  Company Number: US-JNJFOC-20091101353

PATIENT
  Sex: Female
  Weight: 73.03 kg

DRUGS (15)
  1. DURAGESIC-100 [Suspect]
     Indication: DRUG USE FOR UNKNOWN INDICATION
     Dosage: 50 UG/HR FOUND ON RIGHT SHOULDER ON 26-FEB-2005
     Route: 062
  2. ACETAMINOPHEN [Concomitant]
     Route: 065
  3. ALPRAZOLAM [Concomitant]
     Route: 065
  4. AMITRIPTYLINE [Concomitant]
     Route: 065
  5. NORTRIPTYLINE [Concomitant]
     Route: 065
  6. DIAZEPAM [Concomitant]
     Route: 065
  7. NORDIAZEPAM [Concomitant]
     Route: 065
  8. TEMAZEPAM [Concomitant]
     Route: 065
  9. BENZODIAZEPINES NOS [Concomitant]
     Route: 065
  10. AMPHETAMINES [Concomitant]
     Route: 065
  11. OPIATES [Concomitant]
     Route: 065
  12. TRICYCLIC ANTIDEPRESSIVE [Concomitant]
     Route: 065
  13. HYDROCODONE [Concomitant]
     Route: 065
  14. CAFFEINE [Concomitant]
     Route: 065
  15. OXAZEPAM [Concomitant]
     Route: 065

REACTIONS (2)
  - ARTERIOSCLEROSIS [None]
  - HYPERTENSION [None]
